FAERS Safety Report 7425074-5 (Version None)
Quarter: 2011Q2

REPORT INFORMATION
  Report Type: 
  Country: None (occurrence: None)
  Receive Date: 20110420
  Receipt Date: 20110412
  Transmission Date: 20111010
  Serious: Yes (Hospitalization)
  Sender: FDA-Public Use
  Company Number: US-BIOGENIDEC-2011BI010607

PATIENT
  Age: 43 Year
  Sex: Male

DRUGS (3)
  1. TYSABRI [Suspect]
     Route: 042
     Dates: start: 20101110
  2. TYSABRI [Suspect]
     Indication: MULTIPLE SCLEROSIS
     Route: 042
     Dates: start: 20050225
  3. TYSABRI [Suspect]
     Route: 042
     Dates: start: 20061013, end: 20080119

REACTIONS (7)
  - URINARY TRACT INFECTION [None]
  - CYST [None]
  - HEADACHE [None]
  - BACK PAIN [None]
  - PARALYSIS [None]
  - NAUSEA [None]
  - DIZZINESS [None]
